FAERS Safety Report 4654911-2 (Version None)
Quarter: 2005Q2

REPORT INFORMATION
  Report Type: 
  Country: None (occurrence: None)
  Receive Date: 20050506
  Receipt Date: 20040528
  Transmission Date: 20051028
  Serious: No
  Sender: FDA-Public Use
  Company Number: US-GLAXOSMITHKLINE-A0512604A

PATIENT
  Sex: Female

DRUGS (1)
  1. AMOXIL [Suspect]
     Indication: ILL-DEFINED DISORDER
     Route: 048
     Dates: start: 20040212, end: 20040222

REACTIONS (5)
  - DRUG INEFFECTIVE [None]
  - INCREASED UPPER AIRWAY SECRETION [None]
  - SWELLING [None]
  - VASODILATATION [None]
  - WEIGHT DECREASED [None]
